FAERS Safety Report 14192311 (Version 2)
Quarter: 2017Q4

REPORT INFORMATION
  Report Type: Spontaneous
  Country: ES (occurrence: ES)
  Receive Date: 20171115
  Receipt Date: 20171214
  Transmission Date: 20180321
  Serious: Yes (Other)
  Sender: FDA-Public Use
  Company Number: ES-GILEAD-2017-0304195

PATIENT
  Age: 51 Year
  Sex: Male

DRUGS (3)
  1. DARUNAVIR W/RITONAVIR [Concomitant]
     Active Substance: DARUNAVIR\RITONAVIR
     Indication: HIV INFECTION
     Dosage: UNK
     Dates: start: 201105
  2. TRUVADA [Suspect]
     Active Substance: EMTRICITABINE\TENOFOVIR DISOPROXIL FUMARATE
     Indication: HIV INFECTION
     Dosage: UNK
     Route: 065
     Dates: start: 201105, end: 2016
  3. COBICISTAT W/DARUNAVIR [Concomitant]
     Active Substance: COBICISTAT\DARUNAVIR ETHANOLATE
     Indication: HIV INFECTION
     Dosage: UNK

REACTIONS (1)
  - Osteoporosis [Unknown]

NARRATIVE: CASE EVENT DATE: 2011
